FAERS Safety Report 15644869 (Version 3)
Quarter: 2019Q2

REPORT INFORMATION
  Report Type: Report from Study
  Country: US (occurrence: US)
  Receive Date: 20181121
  Receipt Date: 20190518
  Transmission Date: 20190711
  Serious: No
  Sender: FDA-Public Use
  Company Number: PHEH2018US048662

PATIENT
  Sex: Male

DRUGS (1)
  1. ENTRESTO [Suspect]
     Active Substance: SACUBITRIL\VALSARTAN
     Indication: PRODUCT USED FOR UNKNOWN INDICATION
     Dosage: 100 MG (SACUBITRIL 49 MG AND VALSARTAN 51 MG, BID
     Route: 048

REACTIONS (5)
  - Weight increased [Unknown]
  - Eating disorder [Unknown]
  - Pain in extremity [Unknown]
  - Pain [Unknown]
  - Weight fluctuation [Unknown]
